FAERS Safety Report 5759338-8 (Version None)
Quarter: 2008Q2

REPORT INFORMATION
  Report Type: 
  Country: None (occurrence: None)
  Receive Date: 20080530
  Receipt Date: 20080519
  Transmission Date: 20081010
  Serious: Yes (Death, Other)
  Sender: FDA-Public Use
  Company Number: 100#08#2008-02789

PATIENT
  Age: 69 Year
  Sex: Male

DRUGS (1)
  1. HYDROMORPHONE (AMP IM) (HYDROMORPHONE) [Suspect]
     Indication: PAIN
     Dosage: 10 MG INTRAMUSCULAR
     Route: 030

REACTIONS (5)
  - DRUG DISPENSING ERROR [None]
  - GENERAL PHYSICAL HEALTH DETERIORATION [None]
  - MEDICATION ERROR [None]
  - RESPIRATORY ARREST [None]
  - WRONG DRUG ADMINISTERED [None]
